FAERS Safety Report 16955967 (Version 1)
Quarter: 2019Q4

REPORT INFORMATION
  Report Type: Report from Study
  Country: JP (occurrence: JP)
  Receive Date: 20191024
  Receipt Date: 20191024
  Transmission Date: 20200122
  Serious: Yes (Hospitalization)
  Sender: FDA-Public Use
  Company Number: PHHO2019JP007711

PATIENT
  Age: 85 Year
  Sex: Female
  Weight: 50.6 kg

DRUGS (29)
  1. SODIUM HYALURONATE [Concomitant]
     Active Substance: HYALURONATE SODIUM
     Indication: KERATOPATHY
     Dosage: UNK
     Route: 065
     Dates: start: 20170131
  2. FLUVOXAMINE MALEATE. [Concomitant]
     Active Substance: FLUVOXAMINE MALEATE
     Indication: ADJUSTMENT DISORDER
     Dosage: UNK
     Route: 065
     Dates: start: 20171116
  3. TOLVAPTAN [Concomitant]
     Active Substance: TOLVAPTAN
     Indication: HYPERTENSION
     Dosage: UNK
     Route: 065
     Dates: start: 20131010
  4. SUVOREXANT. [Concomitant]
     Active Substance: SUVOREXANT
     Indication: INSOMNIA
     Dosage: UNK
     Route: 065
     Dates: start: 20151210
  5. SALICYLIC ACID. [Concomitant]
     Active Substance: SALICYLIC ACID
     Indication: HYPERKERATOSIS
     Dosage: UNK
     Route: 065
     Dates: start: 20160107
  6. INDOMETACIN [Concomitant]
     Active Substance: INDOMETHACIN
     Indication: BACK PAIN
     Dosage: UNK
     Route: 065
     Dates: start: 20170307
  7. FELBINAC [Concomitant]
     Active Substance: FELBINAC
     Indication: BACK PAIN
     Dosage: UNK
     Route: 065
     Dates: start: 20171116
  8. AZOSEMIDE [Concomitant]
     Active Substance: AZOSEMIDE
     Indication: CARDIAC FAILURE
     Dosage: UNK
     Route: 065
     Dates: start: 20180118
  9. HYDROCORTISONE BUTYRATE PROPIONATE [Concomitant]
     Indication: ECZEMA
     Dosage: UNK
     Route: 065
     Dates: start: 20160303
  10. FRADIOMYCIN SULFATE [Concomitant]
     Indication: ECZEMA
     Route: 065
  11. LULICONAZOLE. [Concomitant]
     Active Substance: LULICONAZOLE
     Indication: DERMATOPHYTOSIS OF NAIL
     Dosage: UNK
     Route: 065
     Dates: start: 20170511
  12. URAPIDIL [Concomitant]
     Active Substance: URAPIDIL
     Indication: HYPERTENSION
     Dosage: UNK
     Route: 065
     Dates: start: 20140227
  13. MIANSERIN HYDROCHLORIDE [Concomitant]
     Active Substance: MIANSERIN HYDROCHLORIDE
     Indication: ADJUSTMENT DISORDER
     Dosage: UNK
     Route: 065
     Dates: start: 20170511
  14. PREDNISOLONE VALERATE ACETATE [Concomitant]
     Active Substance: PREDNISOLONE VALERATE ACETATE
     Indication: ECZEMA
     Dosage: UNK
     Route: 065
     Dates: start: 20151119
  15. UREA. [Concomitant]
     Active Substance: UREA
     Indication: HYPERKERATOSIS
     Dosage: UNK
     Route: 065
     Dates: start: 20151029
  16. BETAMETHASONE SODIUM PHOSPHATE [Concomitant]
     Active Substance: BETAMETHASONE SODIUM PHOSPHATE
     Indication: HERPES OPHTHALMIC
     Dosage: UNK
     Route: 065
     Dates: start: 20171106
  17. LORAZEPAM. [Concomitant]
     Active Substance: LORAZEPAM
     Indication: ADJUSTMENT DISORDER
     Dosage: UNK
     Route: 065
     Dates: start: 20180111
  18. PITAVASTATIN CALCIUM [Concomitant]
     Active Substance: PITAVASTATIN CALCIUM
     Indication: DYSLIPIDAEMIA
     Dosage: UNK
     Route: 065
     Dates: start: 20151023
  19. LCZ696 [Suspect]
     Active Substance: SACUBITRIL\VALSARTAN
     Indication: CARDIAC FAILURE
     Dosage: 50 MG, BID
     Route: 048
     Dates: start: 20190516
  20. LOXOPROFEN SODIUM HYDRATE [Concomitant]
     Active Substance: LOXOPROFEN SODIUM DIHYDRATE
     Indication: BACK PAIN
     Dosage: UNK
     Route: 065
     Dates: start: 20170928
  21. ZOPICLONE [Concomitant]
     Active Substance: ZOPICLONE
     Indication: INSOMNIA
     Dosage: UNK
     Route: 065
     Dates: start: 20190208
  22. HEPARINOID [Concomitant]
     Active Substance: CHONDROITIN SULFATE (BOVINE)
     Indication: ECZEMA
     Dosage: UNK
     Route: 065
     Dates: start: 20160303
  23. AMLODIPINE BESILATE [Concomitant]
     Active Substance: AMLODIPINE BESYLATE
     Indication: HYPERTENSION
     Dosage: UNK
     Route: 065
     Dates: start: 20160726
  24. FLAVOXATE HYDROCHLORIDE. [Concomitant]
     Active Substance: FLAVOXATE HYDROCHLORIDE
     Indication: DYSURIA
     Dosage: UNK
     Route: 065
     Dates: start: 20140327
  25. ACICLOVIR [Concomitant]
     Active Substance: ACYCLOVIR
     Indication: HERPES OPHTHALMIC
     Dosage: UNK
     Route: 065
     Dates: start: 20171117
  26. SODIUM PICOSULFATE [Concomitant]
     Active Substance: SODIUM PICOSULFATE
     Indication: CONSTIPATION
     Route: 065
     Dates: start: 20180626
  27. SENNOSIDE A+B CALCIUM [Concomitant]
     Active Substance: SENNOSIDES A AND B
     Indication: CONSTIPATION
     Dosage: UNK
     Route: 065
     Dates: start: 20180801
  28. CARVEDILOL. [Concomitant]
     Active Substance: CARVEDILOL
     Indication: HYPERTENSION
     Dosage: UNK
     Route: 065
     Dates: start: 20180802
  29. BETAMETHASONE VALERATE. [Concomitant]
     Active Substance: BETAMETHASONE VALERATE
     Indication: ECZEMA
     Dosage: UNK
     Route: 065
     Dates: start: 20190725

REACTIONS (2)
  - Nausea [Recovered/Resolved]
  - Headache [Recovered/Resolved]

NARRATIVE: CASE EVENT DATE: 20190722
